FAERS Safety Report 5281264-1 (Version None)
Quarter: 2007Q1

REPORT INFORMATION
  Report Type: 
  Country: None (occurrence: None)
  Receive Date: 20061218
  Receipt Date: 20060327
  Transmission Date: 20070707
  Serious: Yes (Other)
  Sender: FDA-Public Use
  Company Number: US200603001843

PATIENT
  Age: 61 Year
  Sex: Female

DRUGS (3)
  1. HUMULIN N [Suspect]
     Indication: DIABETES MELLITUS
     Dosage: 22 U, EACH EVENING
     Dates: start: 20030101
  2. NOVOLOG [Concomitant]
  3. HUMULIN N [Suspect]
     Dosage: 22 U, AS NEEDED
     Dates: start: 20030101

REACTIONS (4)
  - BLOOD GLUCOSE DECREASED [None]
  - DELIRIUM [None]
  - HYPERHIDROSIS [None]
  - LOSS OF CONSCIOUSNESS [None]
